FAERS Safety Report 23389937 (Version 1)
Quarter: 2024Q1

REPORT INFORMATION
  Report Type: Spontaneous
  Country: ZA (occurrence: ZA)
  Receive Date: 20240111
  Receipt Date: 20240111
  Transmission Date: 20240410
  Serious: Yes (Hospitalization, Other)
  Sender: FDA-Public Use
  Company Number: ZA-ALKEM LABORATORIES LIMITED-ZA-ALKEM-2023-16528

PATIENT
  Age: 19 Year
  Sex: Male

DRUGS (2)
  1. COLCHICINE [Suspect]
     Active Substance: COLCHICINE
     Indication: Product used for unknown indication
     Dosage: 24 MILLIGRAM (0.4 MILLIGRAM/KILOGRAM) 24 TABLETS
     Route: 048
  2. CYPROHEPTADINE HYDROCHLORIDE [Suspect]
     Active Substance: CYPROHEPTADINE HYDROCHLORIDE
     Indication: Product used for unknown indication
     Dosage: UNK (50 TABLETS) A HERBAL ANTIOXIDANT
     Route: 048

REACTIONS (10)
  - Acute kidney injury [Unknown]
  - Myocardial necrosis marker increased [Unknown]
  - Suicide attempt [Unknown]
  - Epistaxis [Unknown]
  - Hepatic function abnormal [Unknown]
  - Febrile neutropenia [Unknown]
  - Pancytopenia [Unknown]
  - Multiple organ dysfunction syndrome [Recovering/Resolving]
  - Overdose [Unknown]
  - Toxicity to various agents [Unknown]
